FAERS Safety Report 4656265-4 (Version None)
Quarter: 2005Q2

REPORT INFORMATION
  Report Type: 
  Country: None (occurrence: None)
  Receive Date: 20050509
  Receipt Date: 20050321
  Transmission Date: 20051028
  Serious: No
  Sender: FDA-Public Use
  Company Number: US-GLAXOSMITHKLINE-A0550610A

PATIENT
  Age: 74 Year
  Sex: Female

DRUGS (5)
  1. AVANDAMET [Suspect]
     Route: 048
     Dates: start: 20050301
  2. TRICOR [Concomitant]
  3. DOXEPIN HCL [Concomitant]
     Route: 065
  4. CALCIUM GLUCONATE [Concomitant]
     Route: 065
  5. VITAMIN E [Concomitant]

REACTIONS (1)
  - NASOPHARYNGITIS [None]
